FAERS Safety Report 10917318 (Version 1)
Quarter: 2015Q1

REPORT INFORMATION
  Report Type: Spontaneous
  Country: US (occurrence: None)
  Receive Date: 20150312
  Receipt Date: 20150312
  Transmission Date: 20150721
  Serious: Yes (Hospitalization)
  Sender: FDA-Public Use
  Company Number: None

PATIENT
  Age: 64 Year
  Sex: Female
  Weight: 83.4 kg

DRUGS (23)
  1. CITALOPRAM [Concomitant]
     Active Substance: CITALOPRAM HYDROBROMIDE
  2. DICLOFENAC [Concomitant]
     Active Substance: DICLOFENAC
  3. OMEPRAZOLE. [Concomitant]
     Active Substance: OMEPRAZOLE
  4. DEXAMETHASONE. [Concomitant]
     Active Substance: DEXAMETHASONE
  5. CYCLOPHOSPHAMIDE. [Concomitant]
     Active Substance: CYCLOPHOSPHAMIDE
  6. LOPERAMIDE [Concomitant]
     Active Substance: LOPERAMIDE
  7. SIROLIMUS 2 MG [Suspect]
     Active Substance: SIROLIMUS
     Indication: PLASMA CELL MYELOMA
     Dosage: 12 MG D-2, 4 MG D-1,1,2,3,4
     Route: 048
     Dates: start: 20150225, end: 20150225
  8. CHOLECALCIFEROLE [Concomitant]
  9. FLAXSEED [Concomitant]
     Active Substance: FLAX SEED
  10. DIFLUPREDNATE [Concomitant]
     Active Substance: DIFLUPREDNATE
  11. PROMETHAZINE [Concomitant]
     Active Substance: PROMETHAZINE\PROMETHAZINE HYDROCHLORIDE
  12. MONTELUKAST [Concomitant]
     Active Substance: MONTELUKAST SODIUM
  13. DOCUSATE SODIUM. [Concomitant]
     Active Substance: DOCUSATE SODIUM
  14. CALCIUM CITRATE + VITAMIN D [Concomitant]
  15. MULTIVITAMIN [Concomitant]
     Active Substance: VITAMINS
  16. RAMELTRON [Concomitant]
  17. ALBUTEROL. [Concomitant]
     Active Substance: ALBUTEROL
  18. OXYCODONE [Concomitant]
     Active Substance: OXYCODONE
  19. GABAPENTIN. [Concomitant]
     Active Substance: GABAPENTIN
  20. HYDROCHLOROQUINE 200 MG [Suspect]
     Active Substance: HYDROXYCHLOROQUINE SULFATE
     Indication: PLASMA CELL MYELOMA
     Route: 048
  21. CHONDROITIN SULFATE (BOVINE)\GLUCOSAMINE SULFATE [Concomitant]
     Active Substance: CHONDROITIN SULFATE (BOVINE)\GLUCOSAMINE SULFATE
  22. ONDANSETRON [Concomitant]
     Active Substance: ONDANSETRON
  23. OLANZAPINE. [Concomitant]
     Active Substance: OLANZAPINE

REACTIONS (8)
  - Cardio-respiratory arrest [None]
  - Hypoxia [None]
  - Chest pain [None]
  - Chest discomfort [None]
  - Sinus tachycardia [None]
  - Pulmonary oedema [None]
  - Asthma [None]
  - Cardiac failure congestive [None]

NARRATIVE: CASE EVENT DATE: 20150303
